FAERS Safety Report 4376721-6 (Version None)
Quarter: 2004Q2

REPORT INFORMATION
  Report Type: 
  Country: None (occurrence: None)
  Receive Date: 20040608
  Receipt Date: 20040526
  Transmission Date: 20050107
  Serious: Yes (Life-Threatening, Hospitalization, Other)
  Sender: FDA-Public Use
  Company Number: 2004031488

PATIENT
  Age: 55 Year
  Sex: Male

DRUGS (2)
  1. LOPID [Suspect]
     Indication: BLOOD CHOLESTEROL INCREASED
     Dates: start: 20040501
  2. ASASANTIN (ACETYLSALICYLIC ACID, DIPYRIDAMOLE) [Suspect]
     Indication: CEREBROVASCULAR ACCIDENT
     Dosage: 50/400 MG (2 IN 1 D)
     Dates: start: 20040101, end: 20040508

REACTIONS (2)
  - ANGIONEUROTIC OEDEMA [None]
  - BLOOD CHOLESTEROL INCREASED [None]
